FAERS Safety Report 4315219-8 (Version None)
Quarter: 2004Q1

REPORT INFORMATION
  Report Type: 
  Country: None (occurrence: None)
  Receive Date: 20040311
  Receipt Date: 20040303
  Transmission Date: 20041129
  Serious: Yes (Life-Threatening)
  Sender: FDA-Public Use
  Company Number: PHBS2004JP03039

PATIENT
  Age: 30 Year
  Sex: Female
  Weight: 45 kg

DRUGS (2)
  1. VOLTAREN [Suspect]
     Indication: POST PROCEDURAL PAIN
     Dosage: 50 MG, ONCE/SINGLE
     Route: 048
     Dates: start: 20031015, end: 20031015
  2. ORACEF [Concomitant]
     Indication: PERICORONITIS
     Dosage: 250 MG/DAY
     Route: 048
     Dates: start: 20031015, end: 20031015

REACTIONS (3)
  - ABDOMINAL PAIN [None]
  - DIARRHOEA [None]
  - SHOCK [None]
